FAERS Safety Report 6551860-X (Version None)
Quarter: 2010Q1

REPORT INFORMATION
  Report Type: 
  Country: None (occurrence: None)
  Receive Date: 20100126
  Receipt Date: 20100111
  Transmission Date: 20100710
  Serious: Yes (Disabling, Other)
  Sender: FDA-Public Use
  Company Number: FR-JNJFOC-20100109279

PATIENT
  Sex: Female

DRUGS (23)
  1. TOPALGIC [Suspect]
     Indication: DRUG USE FOR UNKNOWN INDICATION
     Route: 048
  2. TOPALGIC [Suspect]
     Route: 048
  3. TOPALGIC [Suspect]
     Route: 048
  4. TOPALGIC [Suspect]
     Route: 048
  5. COLTRAMYL [Suspect]
     Indication: DRUG USE FOR UNKNOWN INDICATION
     Route: 048
  6. COLTRAMYL [Suspect]
     Route: 048
  7. NEURONTIN [Suspect]
     Indication: DRUG USE FOR UNKNOWN INDICATION
     Route: 048
  8. NEURONTIN [Suspect]
     Route: 048
  9. NEURONTIN [Suspect]
     Route: 048
  10. NEURONTIN [Suspect]
     Route: 048
  11. RIVOTRIL [Suspect]
     Indication: DRUG USE FOR UNKNOWN INDICATION
     Route: 048
  12. LEXOMIL [Suspect]
     Indication: DRUG USE FOR UNKNOWN INDICATION
     Route: 048
  13. LEXOMIL [Suspect]
     Route: 048
  14. NEXIUM [Suspect]
     Indication: DRUG USE FOR UNKNOWN INDICATION
     Route: 048
  15. NEXIUM [Suspect]
     Route: 048
  16. ACTISKENAN [Suspect]
     Indication: DRUG USE FOR UNKNOWN INDICATION
     Route: 048
  17. ACTISKENAN [Suspect]
     Route: 048
  18. NOCTRAN [Suspect]
     Indication: DRUG USE FOR UNKNOWN INDICATION
     Route: 048
  19. NOCTRAN [Suspect]
     Route: 048
  20. CELESTAMINE TAB [Concomitant]
  21. CELESTAMINE TAB [Concomitant]
  22. UTROGESTAN [Concomitant]
  23. BI-PROFENID [Concomitant]

REACTIONS (6)
  - BALANCE DISORDER [None]
  - FALL [None]
  - JOINT SPRAIN [None]
  - LOSS OF CONSCIOUSNESS [None]
  - OPEN WOUND [None]
  - TOOTH FRACTURE [None]
